FAERS Safety Report 5090152-5 (Version None)
Quarter: 2006Q3

REPORT INFORMATION
  Report Type: 
  Country: None (occurrence: None)
  Receive Date: 20060828
  Receipt Date: 20060816
  Transmission Date: 20061208
  Serious: Yes (Other)
  Sender: FDA-Public Use
  Company Number: GB-ROCHE-460545

PATIENT
  Age: 57 Year
  Sex: Female
  Weight: 107.9 kg

DRUGS (2)
  1. XENICAL [Suspect]
     Indication: OBESITY
     Route: 048
     Dates: start: 20060712
  2. PROZAC [Concomitant]
     Route: 048

REACTIONS (1)
  - SUICIDAL IDEATION [None]
